FAERS Safety Report 19991744 (Version 1)
Quarter: 2021Q4

REPORT INFORMATION
  Report Type: Spontaneous
  Country: US (occurrence: US)
  Receive Date: 20211025
  Receipt Date: 20211025
  Transmission Date: 20220303
  Serious: No
  Sender: FDA-Public Use
  Company Number: US-TAKEDA-2021TUS064296

PATIENT
  Age: 67 Year
  Sex: Male
  Weight: 88.5 kg

DRUGS (1)
  1. ENTYVIO [Suspect]
     Active Substance: VEDOLIZUMAB
     Indication: Colitis ulcerative
     Dosage: 300 MILLIGRAM
     Route: 042
     Dates: start: 20160303

REACTIONS (2)
  - No adverse event [Unknown]
  - Product preparation error [Unknown]

NARRATIVE: CASE EVENT DATE: 20211014
